FAERS Safety Report 22601545 (Version 1)
Quarter: 2023Q2

REPORT INFORMATION
  Report Type: Spontaneous
  Country: US (occurrence: US)
  Receive Date: 20230614
  Receipt Date: 20230614
  Transmission Date: 20230721
  Serious: No
  Sender: FDA-Public Use
  Company Number: US-PFIZER INC-PV202300103027

PATIENT
  Age: 34 Year
  Sex: Male

DRUGS (2)
  1. CIBINQO [Suspect]
     Active Substance: ABROCITINIB
     Indication: Dermatitis atopic
     Dosage: 100 MG, 1X/DAY
     Route: 048
  2. CIBINQO [Suspect]
     Active Substance: ABROCITINIB
     Dosage: 200 MG, 1X/DAY
     Route: 048

REACTIONS (6)
  - Therapeutic product effect incomplete [Unknown]
  - Erythema [Recovering/Resolving]
  - Skin exfoliation [Unknown]
  - Xerosis [Not Recovered/Not Resolved]
  - Pruritus [Not Recovered/Not Resolved]
  - Lichenification [Not Recovered/Not Resolved]
